FAERS Safety Report 14640459 (Version 4)
Quarter: 2019Q2

REPORT INFORMATION
  Report Type: Spontaneous
  Country: US (occurrence: US)
  Receive Date: 20180315
  Receipt Date: 20190410
  Transmission Date: 20190711
  Serious: No
  Sender: FDA-Public Use
  Company Number: US-PFIZER INC-2018103785

PATIENT
  Age: 51 Year
  Sex: Male

DRUGS (1)
  1. XELJANZ XR [Suspect]
     Active Substance: TOFACITINIB CITRATE
     Indication: RHEUMATOID ARTHRITIS
     Dosage: 11 MG, DAILY
     Route: 048
     Dates: start: 201702

REACTIONS (6)
  - Gait inability [Unknown]
  - Migraine [Unknown]
  - Back pain [Unknown]
  - Product dose omission [Unknown]
  - Blood cholesterol increased [Unknown]
  - Constipation [Unknown]

NARRATIVE: CASE EVENT DATE: 20180725
